FAERS Safety Report 21729830 (Version 1)
Quarter: 2022Q4

REPORT INFORMATION
  Report Type: Spontaneous
  Country: PT (occurrence: PT)
  Receive Date: 20221214
  Receipt Date: 20221214
  Transmission Date: 20230113
  Serious: Yes (Other)
  Sender: FDA-Public Use
  Company Number: PT-SLATE RUN PHARMACEUTICALS-22PT001442

PATIENT

DRUGS (2)
  1. BUPROPION HYDROCHLORIDE [Suspect]
     Active Substance: BUPROPION HYDROCHLORIDE
     Indication: Vascular dementia
     Dosage: 150 MILLIGRAM, QD
  2. DONEPEZIL [Suspect]
     Active Substance: DONEPEZIL
     Indication: Vascular dementia
     Dosage: 5 MILLIGRAM, QD

REACTIONS (3)
  - Cerebral small vessel ischaemic disease [Unknown]
  - Off label use [Recovered/Resolved]
  - Drug ineffective for unapproved indication [Recovered/Resolved]
